FAERS Safety Report 13651135 (Version 1)
Quarter: 2017Q2

REPORT INFORMATION
  Report Type: Spontaneous
  Country: RO (occurrence: RO)
  Receive Date: 20170614
  Receipt Date: 20170614
  Transmission Date: 20170830
  Serious: Yes (Other)
  Sender: FDA-Public Use
  Company Number: RO-B. BRAUN MEDICAL INC.-2021978

PATIENT
  Age: 7 Year
  Sex: Female

DRUGS (5)
  1. RINGER [Suspect]
     Active Substance: RINGER^S SOLUTION
     Indication: DEHYDRATION
     Dates: start: 20170103, end: 20170105
  2. PARACETAMOL [Concomitant]
     Active Substance: ACETAMINOPHEN
     Route: 042
     Dates: start: 20170101, end: 20170105
  3. CEFUROXIME. [Concomitant]
     Active Substance: CEFUROXIME
     Route: 042
     Dates: start: 20170101, end: 20170106
  4. SODIUM CHLORIDE. [Concomitant]
     Active Substance: SODIUM CHLORIDE
     Route: 042
     Dates: start: 20170101, end: 20170106
  5. GLUCOSE [Concomitant]
     Active Substance: DEXTROSE
     Route: 042
     Dates: start: 20170101, end: 20170106

REACTIONS (1)
  - Hypersensitivity [Recovered/Resolved]

NARRATIVE: CASE EVENT DATE: 20170105
